FAERS Safety Report 9444738 (Version 3)
Quarter: 2014Q1

REPORT INFORMATION
  Report Type: Report from Study
  Country: BE (occurrence: BE)
  Receive Date: 20130807
  Receipt Date: 20140219
  Transmission Date: 20141002
  Serious: Yes (Other)
  Sender: FDA-Public Use
  Company Number: PHHY2013BE084554

PATIENT
  Sex: 0

DRUGS (1)
  1. FTY 720 [Suspect]
     Indication: MULTIPLE SCLEROSIS
     Dosage: 0.5 MG, QD
     Route: 048
     Dates: end: 201205

REACTIONS (3)
  - Bradycardia [Recovered/Resolved]
  - Syncope [Recovered/Resolved]
  - Ventricular extrasystoles [Recovered/Resolved]
